FAERS Safety Report 5893952-4 (Version None)
Quarter: 2008Q3

REPORT INFORMATION
  Report Type: 
  Country: None (occurrence: None)
  Receive Date: 20080923
  Receipt Date: 20080903
  Transmission Date: 20090109
  Serious: No
  Sender: FDA-Public Use
  Company Number: US-B.I. PHARMACEUTICALS,INC./RIDGEFIELD-2008-BP-14206BP

PATIENT
  Sex: Male

DRUGS (8)
  1. FLOMAX [Suspect]
     Indication: BENIGN PROSTATIC HYPERPLASIA
     Dosage: .4MG
     Route: 048
     Dates: start: 20080201
  2. AVODART [Concomitant]
  3. METOPROLOL TARTRATE [Concomitant]
  4. POTASSIUM CHLORIDE [Concomitant]
  5. TRAMADOL HCL [Concomitant]
  6. WARFARIN SODIUM [Concomitant]
  7. FUROSEMIDE [Concomitant]
  8. OMEPRAZOLE [Concomitant]

REACTIONS (2)
  - DRUG INEFFECTIVE [None]
  - NOCTURIA [None]
